FAERS Safety Report 4661047-3 (Version None)
Quarter: 2005Q2

REPORT INFORMATION
  Report Type: 
  Country: None (occurrence: None)
  Receive Date: 20050511
  Receipt Date: 20050503
  Transmission Date: 20051028
  Serious: Yes (Death)
  Sender: FDA-Public Use
  Company Number: 163-20785-05020549

PATIENT
  Age: 50 Year
  Sex: Female

DRUGS (7)
  1. THALOMID [Suspect]
     Indication: MULTIPLE MYELOMA
     Dosage: 300 MG, QD, ORAL
     Route: 048
     Dates: start: 20040905, end: 20041227
  2. CALCIUM (CALCIUM) [Concomitant]
  3. LEVOTHYROXINE SODIUM [Concomitant]
  4. RANITIDINE [Concomitant]
  5. VITAMIN C (ASCORBIC ACID) [Concomitant]
  6. FISH OIL (FISH OIL) [Concomitant]
  7. ASPIRIN [Concomitant]

REACTIONS (3)
  - EPISTAXIS [None]
  - LEUKAEMIA PLASMACYTIC [None]
  - MALIGNANT NEOPLASM PROGRESSION [None]
